FAERS Safety Report 16888064 (Version 2)
Quarter: 2019Q4

REPORT INFORMATION
  Report Type: Spontaneous
  Country: US (occurrence: US)
  Receive Date: 20191006
  Receipt Date: 20191018
  Transmission Date: 20200122
  Serious: Yes (Other)
  Sender: FDA-Public Use
  Company Number: US-CELLTRION INC.-2019US025314

PATIENT

DRUGS (3)
  1. PREDNISONE. [Concomitant]
     Active Substance: PREDNISONE
     Indication: SUBACUTE CUTANEOUS LUPUS ERYTHEMATOSUS
     Dosage: 40-60MG DAILY (5-MONTH COURSE)
     Route: 048
  2. INFLIXIMAB (UNKNOWN) [Suspect]
     Active Substance: INFLIXIMAB
     Indication: LICHENOID KERATOSIS
  3. INFLIXIMAB (UNKNOWN) [Suspect]
     Active Substance: INFLIXIMAB
     Indication: LUPUS-LIKE SYNDROME
     Dosage: UNK (5-MONTH COURSE)
     Route: 042

REACTIONS (2)
  - Lupus-like syndrome [Recovered/Resolved]
  - Product use in unapproved indication [Unknown]
